FAERS Safety Report 6241472-X (Version None)
Quarter: 2009Q2

REPORT INFORMATION
  Report Type: 
  Country: None (occurrence: None)
  Receive Date: 20090623
  Receipt Date: 20051110
  Transmission Date: 20091009
  Serious: Yes (Hospitalization)
  Sender: FDA-Public Use
  Company Number: BR-ROCHE-344391

PATIENT
  Sex: Female
  Weight: 56 kg

DRUGS (38)
  1. DACLIZUMAB [Suspect]
     Dosage: BASELINE VISIT.
     Route: 042
     Dates: start: 20030702, end: 20030702
  2. MYCOPHENOLATE MOFETIL [Suspect]
     Route: 048
     Dates: start: 20030703, end: 20030822
  3. MYCOPHENOLATE MOFETIL [Suspect]
     Route: 048
     Dates: start: 20030823, end: 20031027
  4. MYCOPHENOLATE MOFETIL [Suspect]
     Route: 048
     Dates: start: 20031028, end: 20031109
  5. MYCOPHENOLATE MOFETIL [Suspect]
     Route: 048
     Dates: start: 20031110, end: 20040226
  6. MYCOPHENOLATE MOFETIL [Suspect]
     Route: 048
     Dates: start: 20040227
  7. SIROLIMUS [Suspect]
     Route: 048
     Dates: start: 20030703, end: 20030705
  8. SIROLIMUS [Suspect]
     Route: 048
     Dates: start: 20030706, end: 20030709
  9. TACROLIMUS [Suspect]
     Route: 048
     Dates: start: 20030716, end: 20030812
  10. TACROLIMUS [Suspect]
     Route: 048
     Dates: start: 20030813, end: 20030825
  11. TACROLIMUS [Suspect]
     Route: 048
     Dates: start: 20030826, end: 20031027
  12. TACROLIMUS [Suspect]
     Route: 048
     Dates: start: 20031028, end: 20040129
  13. TACROLIMUS [Suspect]
     Route: 048
     Dates: start: 20040130, end: 20040203
  14. TACROLIMUS [Suspect]
     Route: 048
     Dates: start: 20040204
  15. PREDNISONE [Suspect]
     Route: 048
     Dates: start: 20030703, end: 20030706
  16. PREDNISONE [Suspect]
     Route: 048
     Dates: start: 20030708, end: 20030813
  17. PREDNISONE [Suspect]
     Route: 048
     Dates: start: 20030814, end: 20030815
  18. PREDNISONE [Suspect]
     Route: 048
     Dates: start: 20030816
  19. HYDROCORTISONE [Suspect]
     Route: 042
     Dates: start: 20030707, end: 20030708
  20. METHYLPREDNISOLONE [Suspect]
     Route: 042
     Dates: start: 20030705, end: 20030706
  21. RANITIDINE [Concomitant]
     Route: 048
     Dates: start: 20030704
  22. SULFAMETHOXAZOLE AND TRIMETHOPRIM [Concomitant]
     Route: 048
     Dates: start: 20030703
  23. INSULIN [Concomitant]
     Route: 058
     Dates: start: 20030703
  24. INSULIN [Concomitant]
     Route: 058
     Dates: start: 20040604, end: 20041217
  25. INSULIN [Concomitant]
     Route: 058
     Dates: start: 20041218, end: 20050113
  26. INSULIN [Concomitant]
     Route: 058
     Dates: start: 20050114, end: 20050330
  27. INSULIN [Concomitant]
     Route: 058
     Dates: start: 20050331
  28. LASIX [Concomitant]
     Route: 048
     Dates: start: 20030704, end: 20030704
  29. LASIX [Concomitant]
     Route: 048
     Dates: start: 20030706, end: 20030711
  30. FUROSEMIDE [Concomitant]
     Route: 042
     Dates: start: 20030704, end: 20030705
  31. AMLODIPINE [Concomitant]
     Route: 048
     Dates: start: 20040227, end: 20040917
  32. CAPTOPRIL [Concomitant]
     Route: 048
     Dates: start: 20040917
  33. CEPHALEXIN [Concomitant]
     Dosage: FORMULATION: DRAG.
     Route: 048
     Dates: start: 20030703, end: 20030706
  34. CEPHALEXIN [Concomitant]
     Route: 048
     Dates: start: 20040529, end: 20040612
  35. CEPHALEXIN [Concomitant]
     Route: 048
     Dates: start: 20040613
  36. CEPHALOTIN [Concomitant]
     Route: 042
     Dates: start: 20030702, end: 20030704
  37. OMEPRAZOLE [Concomitant]
     Route: 048
     Dates: start: 20040723
  38. THYMOGLOBULIN [Concomitant]
     Dosage: DRUG NAME REPORTED AS: THYMOGLOBULIN.
     Route: 042
     Dates: start: 20030707

REACTIONS (1)
  - CYTOMEGALOVIRUS INFECTION [None]
